FAERS Safety Report 9257332 (Version 3)
Quarter: 2013Q4

REPORT INFORMATION
  Report Type: Spontaneous
  Country: US (occurrence: US)
  Receive Date: 20130426
  Receipt Date: 20131001
  Transmission Date: 20140711
  Serious: Yes (Hospitalization, Disabling)
  Sender: FDA-Public Use
  Company Number: US-ASTRAZENECA-2013SE27673

PATIENT
  Age: 50 Year
  Sex: Male

DRUGS (13)
  1. NEXIUM [Suspect]
     Indication: GASTRIC DISORDER
     Route: 048
     Dates: start: 20020326, end: 20120716
  2. NEXIUM [Suspect]
     Indication: GASTROOESOPHAGEAL REFLUX DISEASE
     Route: 048
     Dates: start: 20020326, end: 20120716
  3. NEXIUM [Suspect]
     Indication: GASTRIC DISORDER
     Route: 048
     Dates: start: 20060712
  4. NEXIUM [Suspect]
     Indication: GASTROOESOPHAGEAL REFLUX DISEASE
     Route: 048
     Dates: start: 20060712
  5. OMEPRAZOLE [Suspect]
     Indication: GASTRIC DISORDER
     Route: 048
  6. OMEPRAZOLE [Suspect]
     Indication: GASTRIC DISORDER
     Route: 048
     Dates: start: 20120616
  7. PROTONIX [Concomitant]
     Indication: GASTRIC DISORDER
  8. RANITIDINE [Concomitant]
  9. HXDROCOD [Concomitant]
     Indication: PAIN
  10. LOSARTAN [Concomitant]
     Indication: BLOOD PRESSURE
  11. AMITRIPTYLIN [Concomitant]
     Indication: SLEEP DISORDER
  12. MELOXICAM [Concomitant]
     Indication: GASTRIC DISORDER
  13. MOBIC [Concomitant]
     Route: 048

REACTIONS (15)
  - Spinal osteoarthritis [Unknown]
  - Lower limb fracture [Unknown]
  - Osteoporosis [Unknown]
  - Bone disorder [Unknown]
  - Multiple fractures [Unknown]
  - Ankle fracture [Unknown]
  - Gait disturbance [Unknown]
  - Arthritis [Unknown]
  - Osteoarthritis [Unknown]
  - Local swelling [Unknown]
  - Osteoarthritis [Unknown]
  - Diarrhoea [Unknown]
  - Headache [Unknown]
  - Abdominal pain [Unknown]
  - Joint swelling [Unknown]
